FAERS Safety Report 22120114 (Version 1)
Quarter: 2023Q1

REPORT INFORMATION
  Report Type: Spontaneous
  Country: US (occurrence: None)
  Receive Date: 20230321
  Receipt Date: 20230321
  Transmission Date: 20230417
  Serious: No
  Sender: FDA-Public Use
  Company Number: US-ROCHE-3273155

PATIENT
  Sex: Male

DRUGS (1)
  1. ERIVEDGE [Suspect]
     Active Substance: VISMODEGIB
     Indication: Neoplasm skin
     Route: 048
     Dates: start: 202301

REACTIONS (6)
  - Muscle spasms [Unknown]
  - Dizziness [Unknown]
  - Taste disorder [Unknown]
  - Pyrexia [Unknown]
  - Rash [Unknown]
  - Lymphadenopathy [Unknown]
